FAERS Safety Report 6646667-9 (Version None)
Quarter: 2010Q1

REPORT INFORMATION
  Report Type: 
  Country: None (occurrence: None)
  Receive Date: 20100323
  Receipt Date: 20100315
  Transmission Date: 20100710
  Serious: Yes (Hospitalization)
  Sender: FDA-Public Use
  Company Number: FR-JNJFOC-20100304905

PATIENT
  Age: 64 Year
  Sex: Female

DRUGS (1)
  1. REMICADE [Suspect]
     Indication: ANKYLOSING SPONDYLITIS
     Dosage: 11 INFUSIONS
     Route: 042

REACTIONS (5)
  - ASTHENIA [None]
  - BREAST HYPERPLASIA [None]
  - DRUG EFFECT DECREASED [None]
  - HEADACHE [None]
  - LENTIGO MALIGNA STAGE UNSPECIFIED [None]
